FAERS Safety Report 4975158-6 (Version None)
Quarter: 2006Q1

REPORT INFORMATION
  Report Type: 
  Country: None (occurrence: None)
  Receive Date: 20060303
  Receipt Date: 20060303
  Transmission Date: 20060701
  Serious: Yes (Other)
  Sender: FDA-Public Use
  Company Number: None

PATIENT
  Age: 41 Year
  Sex: Female
  Weight: 53.5244 kg

DRUGS (1)
  1. RESTYLANE (HYALURONIC ACID) [Suspect]

REACTIONS (6)
  - EMOTIONAL DISORDER [None]
  - INJECTION SITE MASS [None]
  - SCAR [None]
  - SKIN INJURY [None]
  - SKIN WRINKLING [None]
  - SOFT TISSUE DISORDER [None]
